FAERS Safety Report 5258345-1 (Version None)
Quarter: 2007Q1

REPORT INFORMATION
  Report Type: 
  Country: None (occurrence: None)
  Receive Date: 20070306
  Receipt Date: 20070306
  Transmission Date: 20070707
  Serious: No
  Sender: FDA-Public Use
  Company Number: None

PATIENT
  Sex: Female
  Weight: 99.7913 kg

DRUGS (5)
  1. PAXIL [Suspect]
     Dosage: 30 MG ONE QD PO
     Route: 048
  2. ZOLOFT [Concomitant]
  3. NORPRAMINE [Concomitant]
  4. DOXEPIN HCL [Concomitant]
  5. PAXIL [Concomitant]

REACTIONS (4)
  - ANXIETY [None]
  - PANIC ATTACK [None]
  - PHARMACEUTICAL PRODUCT COMPLAINT [None]
  - SLEEP DISORDER [None]
